FAERS Safety Report 23792000 (Version 3)
Quarter: 2024Q3

REPORT INFORMATION
  Report Type: Spontaneous
  Country: US (occurrence: US)
  Receive Date: 20240429
  Receipt Date: 20240826
  Transmission Date: 20241016
  Serious: No
  Sender: SANOFI AVENTIS
  Company Number: US-SA-SAC20240424000854

PATIENT
  Age: 80 Year
  Sex: Female

DRUGS (3)
  1. DUPIXENT [Suspect]
     Active Substance: DUPILUMAB
     Indication: Dermatitis atopic
     Dosage: 300 MG, QOW
     Route: 058
  2. DUPIXENT [Suspect]
     Active Substance: DUPILUMAB
     Indication: Asthma
  3. ROSUVASTATIN [Concomitant]
     Active Substance: ROSUVASTATIN\ROSUVASTATIN CALCIUM
     Dosage: UNK

REACTIONS (8)
  - Dry skin [Unknown]
  - Dyspnoea [Unknown]
  - Myalgia [Unknown]
  - Pruritus [Unknown]
  - Injection site pain [Unknown]
  - Eye irritation [Unknown]
  - Rash [Unknown]
  - Therapeutic response shortened [Unknown]
